FAERS Safety Report 24540364 (Version 2)
Quarter: 2024Q4

REPORT INFORMATION
  Report Type: Spontaneous
  Country: FR (occurrence: FR)
  Receive Date: 20241023
  Receipt Date: 20241220
  Transmission Date: 20250115
  Serious: Yes (Other)
  Sender: ROCHE
  Company Number: FR-002147023-NVSC2024FR204548

PATIENT

DRUGS (1)
  1. XOLAIR [Suspect]
     Active Substance: OMALIZUMAB
     Indication: Mast cell activation syndrome
     Dosage: UNK
     Route: 065
     Dates: start: 20230715

REACTIONS (12)
  - Depressed level of consciousness [Unknown]
  - Asthma [Unknown]
  - Hypertension [Unknown]
  - Dizziness [Unknown]
  - Pharyngeal swelling [Unknown]
  - Gastrointestinal disorder [Recovering/Resolving]
  - Nasal pruritus [Unknown]
  - Photosensitivity reaction [Unknown]
  - Chronic sinusitis [Unknown]
  - Chest pain [Unknown]
  - Dysphonia [Unknown]
  - Off label use [Unknown]
